FAERS Safety Report 20259304 (Version 1)
Quarter: 2021Q4

REPORT INFORMATION
  Report Type: Report from Study
  Country: US (occurrence: None)
  Receive Date: 20211230
  Receipt Date: 20211230
  Transmission Date: 20220304
  Serious: Yes (Hospitalization)
  Sender: FDA-Public Use
  Company Number: US-Eisai Medical Research-EC-2021-105350

PATIENT
  Age: 81 Year
  Sex: Male
  Weight: 97.9 kg

DRUGS (13)
  1. LENVIMA [Suspect]
     Active Substance: LENVATINIB
     Indication: Renal cancer
     Route: 048
     Dates: start: 202112
  2. KEYTRUDA [Concomitant]
     Active Substance: PEMBROLIZUMAB
     Route: 041
  3. CARBIDOPA\LEVODOPA [Concomitant]
     Active Substance: CARBIDOPA\LEVODOPA
  4. ASPIRIN [Concomitant]
     Active Substance: ASPIRIN
  5. AMIODARONE HYDROCHLORIDE [Concomitant]
     Active Substance: AMIODARONE HYDROCHLORIDE
     Dates: end: 20211223
  6. ULORIC [Concomitant]
     Active Substance: FEBUXOSTAT
  7. FERROUS SULFATE [Concomitant]
     Active Substance: FERROUS SULFATE
     Dosage: 324/(65) MG
  8. LASIX [Concomitant]
     Active Substance: FUROSEMIDE
  9. ATORVASTATIN CALCIUM [Concomitant]
     Active Substance: ATORVASTATIN CALCIUM
  10. LEVOTHYROXINE [Concomitant]
     Active Substance: LEVOTHYROXINE
  11. ROPINIROLE [Concomitant]
     Active Substance: ROPINIROLE
  12. PANTOPRAZOLE SODIUM [Concomitant]
     Active Substance: PANTOPRAZOLE SODIUM
  13. D3-50 [Concomitant]

REACTIONS (1)
  - Blood pressure increased [Recovering/Resolving]

NARRATIVE: CASE EVENT DATE: 20211216
